FAERS Safety Report 10146519 (Version 2)
Quarter: 2014Q2

REPORT INFORMATION
  Report Type: Spontaneous
  Country: US (occurrence: US)
  Receive Date: 20140501
  Receipt Date: 20140627
  Transmission Date: 20141212
  Serious: Yes (Other)
  Sender: FDA-Public Use
  Company Number: US-GILEAD-2014-0100912

PATIENT
  Age: 58 Year
  Sex: Male
  Weight: 57.6 kg

DRUGS (9)
  1. SOVALDI [Suspect]
     Indication: HEPATITIS C
     Dosage: 400 MG, QD
     Route: 048
     Dates: start: 20140305
  2. RIBAPAK [Suspect]
     Indication: HEPATITIS C
     Dosage: 1000 MG, QD
     Route: 048
     Dates: start: 20140305, end: 20140425
  3. PEGASYS [Concomitant]
     Indication: HEPATITIS C
     Dosage: 180 ?G, Q1WK
     Route: 058
     Dates: start: 20140305
  4. PROTONIX [Concomitant]
     Indication: GASTROOESOPHAGEAL REFLUX DISEASE
     Dosage: 20 MG, UNK
     Route: 048
     Dates: start: 20140501
  5. PROPRANOLOL [Concomitant]
     Indication: GASTROOESOPHAGEAL REFLUX DISEASE
     Dosage: 10 MG, UNK
     Route: 048
     Dates: start: 20140501
  6. CONSTULOSE [Concomitant]
     Indication: AMMONIA INCREASED
     Dosage: 15 ML, UNK
     Route: 048
     Dates: start: 20140304
  7. DULERA AERO [Concomitant]
     Indication: DYSPNOEA
     Dosage: UNK
     Route: 048
     Dates: start: 20140112
  8. LASIX                              /00032601/ [Concomitant]
     Indication: OEDEMA
     Dosage: 40 MG, UNK
     Route: 048
     Dates: start: 20140115
  9. ALDACTONE                          /00006201/ [Concomitant]
     Indication: DYSPNOEA
     Dosage: 25 MG, UNK
     Route: 048
     Dates: start: 20140115

REACTIONS (3)
  - Anaemia [Recovering/Resolving]
  - Haemoglobin decreased [Unknown]
  - Haematocrit decreased [Unknown]
